FAERS Safety Report 8424445-8 (Version None)
Quarter: 2012Q2

REPORT INFORMATION
  Report Type: 
  Country: None (occurrence: None)
  Receive Date: 20120610
  Receipt Date: 20120528
  Transmission Date: 20120825
  Serious: Yes (Other)
  Sender: FDA-Public Use
  Company Number: FI-MYLANLABS-2012S1011017

PATIENT
  Age: 63 Year
  Sex: Female

DRUGS (1)
  1. ALENDRONATE SODIUM [Suspect]
     Indication: PRODUCT USED FOR UNKNOWN INDICATION

REACTIONS (5)
  - STRESS FRACTURE [None]
  - BURSITIS [None]
  - FEMUR FRACTURE [None]
  - PYODERMA GANGRENOSUM [None]
  - BONE FORMATION DECREASED [None]
